FAERS Safety Report 4732808-7 (Version None)
Quarter: 2005Q3

REPORT INFORMATION
  Report Type: 
  Country: None (occurrence: None)
  Receive Date: 20050801
  Receipt Date: 20050720
  Transmission Date: 20060218
  Serious: Yes (Hospitalization)
  Sender: FDA-Public Use
  Company Number: 2005096746

PATIENT
  Age: 84 Year
  Sex: Male
  Weight: 58.7 kg

DRUGS (7)
  1. UNASYN [Suspect]
     Indication: ILL-DEFINED DISORDER
     Dosage: 6 GRAM (2 IN 1 D); INTRAVENOUS
     Route: 042
     Dates: start: 20050425, end: 20050509
  2. SULPERAZON                      (SULBACTAM, CEFOPERAZONE) [Suspect]
     Indication: ILL-DEFINED DISORDER
     Dosage: 2  GRAM (2 IN 1 D) ; INTRAVENOUS
     Route: 042
     Dates: start: 20050525, end: 20050526
  3. MEROPEN          (MEROPENEM) [Suspect]
     Indication: ILL-DEFINED DISORDER
     Dosage: 1 GRAM (2 IN 1 D); INTRAVENOUS
     Route: 042
     Dates: start: 20050510, end: 20050524
  4. MINOCYCLINE HCL [Concomitant]
  5. PANSPORIN (CEFOTIAM HYDROCHLORIDE) [Concomitant]
  6. TIENAM (CILASTATIN, IMIPENEM) [Concomitant]
  7. FOSFLUCONAZOLE [Concomitant]

REACTIONS (7)
  - INTERSTITIAL LUNG DISEASE [None]
  - LABORATORY TEST ABNORMAL [None]
  - LYMPHOCYTE STIMULATION TEST POSITIVE [None]
  - PULMONARY FIBROSIS [None]
  - RASH [None]
  - THERAPEUTIC RESPONSE DECREASED [None]
  - THERAPY NON-RESPONDER [None]
